FAERS Safety Report 25083864 (Version 1)
Quarter: 2025Q1

REPORT INFORMATION
  Report Type: Spontaneous
  Country: FR (occurrence: FR)
  Receive Date: 20250317
  Receipt Date: 20250317
  Transmission Date: 20250409
  Serious: Yes (Hospitalization, Other)
  Sender: CIPLA
  Company Number: FR-AFSSAPS-TS2025000174

PATIENT

DRUGS (2)
  1. RIVAROXABAN [Interacting]
     Active Substance: RIVAROXABAN
     Indication: Pulmonary embolism
     Dosage: 20 MILLIGRAM, QD
     Route: 048
     Dates: start: 2024, end: 20241207
  2. KARDEGIC [Interacting]
     Active Substance: ASPIRIN DL-LYSINE
     Indication: Atrial fibrillation
     Dosage: 75 MILLIGRAM, QD
     Route: 048
     Dates: end: 20241207

REACTIONS (2)
  - Gastrointestinal haemorrhage [Recovered/Resolved]
  - Anaemia [Recovering/Resolving]

NARRATIVE: CASE EVENT DATE: 20241207
